FAERS Safety Report 5809959-9 (Version None)
Quarter: 2008Q3

REPORT INFORMATION
  Report Type: 
  Country: None (occurrence: None)
  Receive Date: 20080714
  Receipt Date: 20080714
  Transmission Date: 20090109
  Serious: Yes (Hospitalization, Other)
  Sender: FDA-Public Use
  Company Number: None

PATIENT
  Age: 56 Year
  Sex: Male
  Weight: 84 kg

DRUGS (1)
  1. ETOPOSIDE [Suspect]
     Indication: STEM CELL TRANSPLANT
     Dosage: 4956 MG ONCE IV DRIP
     Route: 041

REACTIONS (5)
  - CHILLS [None]
  - DELIRIUM [None]
  - HYPOTENSION [None]
  - PYREXIA [None]
  - TACHYCARDIA [None]
